FAERS Safety Report 8532520-2 (Version None)
Quarter: 2012Q3

REPORT INFORMATION
  Report Type: 
  Country: None (occurrence: None)
  Receive Date: 20120717
  Receipt Date: 20120717
  Transmission Date: 20120928
  Serious: No
  Sender: FDA-Public Use
  Company Number: None

PATIENT

DRUGS (1)
  1. DULCOLAX [Suspect]
     Dosage: TABLET 10 MG ORAL
     Route: 048

REACTIONS (4)
  - INCORRECT DOSE ADMINISTERED [None]
  - GASTROINTESTINAL MOTILITY DISORDER [None]
  - WRONG DRUG ADMINISTERED [None]
  - MEDICATION ERROR [None]
